FAERS Safety Report 22214808 (Version 1)
Quarter: 2023Q2

REPORT INFORMATION
  Report Type: Report from Study
  Country: US (occurrence: US)
  Receive Date: 20230415
  Receipt Date: 20230415
  Transmission Date: 20230721
  Serious: Yes (Other)
  Sender: FDA-Public Use
  Company Number: US-002147023-NVSC2023US083450

PATIENT
  Age: 63 Year
  Sex: Female

DRUGS (2)
  1. COSENTYX [Suspect]
     Active Substance: SECUKINUMAB
     Indication: Psoriasis
     Dosage: 300 MG, QMO
     Route: 058
     Dates: start: 202303
  2. COSENTYX [Suspect]
     Active Substance: SECUKINUMAB
     Indication: Pustular psoriasis

REACTIONS (9)
  - Glaucoma [Unknown]
  - Diabetes mellitus [Unknown]
  - Psoriasis [Unknown]
  - Skin discolouration [Unknown]
  - Skin exfoliation [Unknown]
  - Pain [Unknown]
  - Skin texture abnormal [Unknown]
  - Grip strength decreased [Unknown]
  - Off label use [Unknown]

NARRATIVE: CASE EVENT DATE: 20230301
